FAERS Safety Report 5049679-4 (Version None)
Quarter: 2006Q3

REPORT INFORMATION
  Report Type: 
  Country: None (occurrence: None)
  Receive Date: 20060706
  Receipt Date: 20060626
  Transmission Date: 20061208
  Serious: Yes (Hospitalization)
  Sender: FDA-Public Use
  Company Number: 200612703GDS

PATIENT
  Sex: Female
  Weight: 62 kg

DRUGS (6)
  1. SORAFENIB [Suspect]
     Indication: RENAL CELL CARCINOMA STAGE UNSPECIFIED
     Dosage: 800 MG, TOTAL DAILY, ORAL
     Route: 048
     Dates: start: 20060524
  2. OXYNORM [Concomitant]
  3. HYDROCORTISONE [Concomitant]
  4. DEXOFEN [DEXCHLORPHENIRAMINE MALEATE] [Concomitant]
  5. ALVEDON [Concomitant]
  6. ACETAMINOPHEN [Concomitant]

REACTIONS (4)
  - DIARRHOEA [None]
  - MUSCULAR WEAKNESS [None]
  - SEPSIS [None]
  - VOMITING [None]
